FAERS Safety Report 21138021 (Version 1)
Quarter: 2022Q3

REPORT INFORMATION
  Report Type: Spontaneous
  Country: FR (occurrence: FR)
  Receive Date: 20220727
  Receipt Date: 20220727
  Transmission Date: 20221027
  Serious: Yes (Hospitalization, Other)
  Sender: FDA-Public Use
  Company Number: None

PATIENT
  Age: 50 Year
  Sex: Male

DRUGS (2)
  1. RIFAMPIN [Suspect]
     Active Substance: RIFAMPIN
     Indication: Osteitis
     Dosage: 900 MG, QD
     Route: 048
     Dates: start: 20220419, end: 20220512
  2. BACTRIM [Suspect]
     Active Substance: SULFAMETHOXAZOLE\TRIMETHOPRIM
     Indication: Osteitis
     Dosage: 1600 MG, QD
     Route: 048
     Dates: start: 20220419, end: 20220512

REACTIONS (3)
  - Toxic skin eruption [Recovered/Resolved]
  - Cell death [Recovered/Resolved]
  - Cholestasis [Recovered/Resolved]

NARRATIVE: CASE EVENT DATE: 20220512
